FAERS Safety Report 4828169-5 (Version None)
Quarter: 2005Q4

REPORT INFORMATION
  Report Type: 
  Country: None (occurrence: None)
  Receive Date: 20051115
  Receipt Date: 20051017
  Transmission Date: 20060501
  Serious: Yes (Life-Threatening, Hospitalization, Other)
  Sender: FDA-Public Use
  Company Number: US-GLAXOSMITHKLINE-A0578705A

PATIENT
  Age: 56 Year
  Sex: Female
  Weight: 73.2 kg

DRUGS (2)
  1. WELLBUTRIN XL [Suspect]
     Indication: DEPRESSION
     Dosage: 150MG PER DAY
     Route: 048
     Dates: start: 20050508, end: 20050519
  2. BEER [Concomitant]
     Dosage: 6U PER DAY
     Route: 048

REACTIONS (3)
  - AMNESIA [None]
  - GRAND MAL CONVULSION [None]
  - INCONTINENCE [None]
